FAERS Safety Report 8798668 (Version 1)
Quarter: 2012Q4

REPORT INFORMATION
  Report Type: 
  Country: AU (occurrence: AU)
  Receive Date: 20120920
  Receipt Date: 20120920
  Transmission Date: 20130627
  Serious: Yes (Other)
  Sender: FDA-Public Use
  Company Number: AU-GLAXOSMITHKLINE-B0806260A

PATIENT
  Age: 42 None
  Sex: Female

DRUGS (5)
  1. NICABATE [Suspect]
     Indication: EX-TOBACCO USER
     Route: 002
     Dates: start: 201105
  2. NICABATE [Suspect]
     Indication: EX-TOBACCO USER
     Route: 002
     Dates: start: 201105
  3. NICABATE [Suspect]
     Indication: EX-TOBACCO USER
     Route: 062
  4. NICABATE [Suspect]
     Indication: EX-TOBACCO USER
     Route: 002
  5. CYMBALTA [Concomitant]
     Indication: DEPRESSION
     Dosage: 60MG per day
     Route: 065
     Dates: start: 201111, end: 201204

REACTIONS (5)
  - Abortion spontaneous [Unknown]
  - Thermal burn [Unknown]
  - Drug ineffective [Unknown]
  - Exposure during pregnancy [Unknown]
  - Nausea [Unknown]
